FAERS Safety Report 8252115-8 (Version None)
Quarter: 2012Q2

REPORT INFORMATION
  Report Type: 
  Country: None (occurrence: None)
  Receive Date: 20120402
  Receipt Date: 20110614
  Transmission Date: 20120825
  Serious: No
  Sender: FDA-Public Use
  Company Number: US-ABBOTT-11P-163-0732773-00

PATIENT
  Age: 38 Year
  Sex: Male
  Weight: 104.42 kg

DRUGS (4)
  1. PRISTIQ [Concomitant]
     Indication: ANXIETY
  2. ANDROGEL [Suspect]
     Indication: PRODUCT USED FOR UNKNOWN INDICATION
     Dosage: 4 PUMPS PER DAY
     Dates: start: 20101001
  3. ANDROGEL [Suspect]
     Dosage: 10 PUMPS PER DAY
     Dates: start: 20101101
  4. ANDROGEL [Suspect]
     Dosage: 8 PUMPS PER DAY
     Dates: start: 20110601

REACTIONS (2)
  - LOW DENSITY LIPOPROTEIN INCREASED [None]
  - BLOOD TESTOSTERONE DECREASED [None]
